FAERS Safety Report 11135551 (Version 1)
Quarter: 2015Q2

REPORT INFORMATION
  Report Type: Spontaneous
  Country: US (occurrence: None)
  Receive Date: 20150522
  Receipt Date: 20150522
  Transmission Date: 20150821
  Serious: No
  Sender: FDA-Public Use
  Company Number: None

PATIENT
  Age: 93 Year
  Sex: Female

DRUGS (1)
  1. TARCEVA [Suspect]
     Active Substance: ERLOTINIB HYDROCHLORIDE
     Route: 048
     Dates: start: 20150311, end: 20150520

REACTIONS (6)
  - Vomiting [None]
  - Cough [None]
  - Diarrhoea [None]
  - Fluid retention [None]
  - Nausea [None]
  - Dyspnoea [None]

NARRATIVE: CASE EVENT DATE: 20150521
